FAERS Safety Report 13476218 (Version 1)
Quarter: 2017Q2

REPORT INFORMATION
  Report Type: Spontaneous
  Country: US (occurrence: US)
  Receive Date: 20170424
  Receipt Date: 20170424
  Transmission Date: 20170830
  Serious: No
  Sender: FDA-Public Use
  Company Number: None

PATIENT
  Age: 16 Year
  Sex: Male

DRUGS (2)
  1. DEXTROSE. [Concomitant]
     Active Substance: DEXTROSE
  2. PENTAMIDINE [Suspect]
     Active Substance: PENTAMIDINE
     Route: 042
     Dates: start: 20170404, end: 20170404

REACTIONS (2)
  - Drug administration error [None]
  - Product deposit [None]

NARRATIVE: CASE EVENT DATE: 20170404
